FAERS Safety Report 21622420 (Version 2)
Quarter: 2022Q4

REPORT INFORMATION
  Report Type: Spontaneous
  Country: SK (occurrence: SK)
  Receive Date: 20221121
  Receipt Date: 20221207
  Transmission Date: 20230112
  Serious: Yes (Other)
  Sender: FDA-Public Use
  Company Number: SK-VERTEX PHARMACEUTICALS-2022-017403

PATIENT
  Sex: Female

DRUGS (2)
  1. ELEXACAFTOR\IVACAFTOR\TEZACAFTOR [Suspect]
     Active Substance: ELEXACAFTOR\IVACAFTOR\TEZACAFTOR
     Indication: Cystic fibrosis
     Dosage: 2 TABS AM
     Route: 048
     Dates: start: 20211203
  2. KALYDECO [Suspect]
     Active Substance: IVACAFTOR
     Indication: Cystic fibrosis
     Dosage: 1 TAB PM
     Route: 048
     Dates: start: 20211203

REACTIONS (2)
  - Metastases to bone [Not Recovered/Not Resolved]
  - Forced expiratory volume decreased [Unknown]

NARRATIVE: CASE EVENT DATE: 20221014
